FAERS Safety Report 6450844-X (Version None)
Quarter: 2009Q4

REPORT INFORMATION
  Report Type: 
  Country: None (occurrence: None)
  Receive Date: 20091123
  Receipt Date: 20090310
  Transmission Date: 20100525
  Serious: Yes (Hospitalization)
  Sender: FDA-Public Use
  Company Number: US-AMGEN-QUU337687

PATIENT
  Sex: Female

DRUGS (2)
  1. ENBREL [Suspect]
     Indication: RHEUMATOID ARTHRITIS
     Route: 058
     Dates: start: 20011201
  2. ENBREL [Suspect]
     Indication: PSORIASIS

REACTIONS (3)
  - ANAEMIA [None]
  - PSORIATIC ARTHROPATHY [None]
  - URINARY TRACT INFECTION [None]
